FAERS Safety Report 4878165-7 (Version None)
Quarter: 2005Q4

REPORT INFORMATION
  Report Type: 
  Country: None (occurrence: None)
  Receive Date: 20051209
  Receipt Date: 20050720
  Transmission Date: 20060501
  Serious: Yes (Other)
  Sender: FDA-Public Use
  Company Number: USA-2005-0020802

PATIENT
  Age: 40 Year
  Sex: Male

DRUGS (7)
  1. OXYCONTIN [Suspect]
  2. MORPHINE SULFATE [Suspect]
  3. PERCOCET [Suspect]
  4. VALIUM [Suspect]
  5. DEMEROL [Suspect]
  6. ADDERALL (DEXAMFETAMINE SULFATE, AMFETAMINE SULFAT) [Suspect]
  7. HYDROCODONE BITARTRATE [Suspect]

REACTIONS (3)
  - DRUG DEPENDENCE [None]
  - DRUG TOLERANCE INCREASED [None]
  - POLYSUBSTANCE ABUSE [None]
